FAERS Safety Report 10461404 (Version 1)
Quarter: 2014Q3

REPORT INFORMATION
  Report Type: Spontaneous
  Country: US (occurrence: None)
  Receive Date: 20140915
  Receipt Date: 20140915
  Transmission Date: 20150326
  Serious: Yes (Other)
  Sender: FDA-Public Use
  Company Number: 2010S1003534

PATIENT
  Age: 57 Year
  Sex: Female
  Weight: 72 kg

DRUGS (7)
  1. LIPITOR [Concomitant]
     Active Substance: ATORVASTATIN CALCIUM
  2. HYDRODIURIL (HYDROCHLOROTHIAZIDE) [Concomitant]
  3. BACLOFEN. [Concomitant]
     Active Substance: BACLOFEN
  4. PHOSPHO-SODA [Suspect]
     Active Substance: SODIUM PHOSPHATE, DIBASIC\SODIUM PHOSPHATE, MONOBASIC
     Indication: COLONOSCOPY
     Route: 048
     Dates: start: 20040929, end: 20040929
  5. PROZAC [Concomitant]
     Active Substance: FLUOXETINE HYDROCHLORIDE
  6. ESTRASE (ESTRADIOL) [Concomitant]
  7. CATAFLAM (DICLOFENAC) [Concomitant]

REACTIONS (7)
  - Acute phosphate nephropathy [None]
  - Pruritus [None]
  - Nephrogenic anaemia [None]
  - Renal failure chronic [None]
  - Haemodialysis [None]
  - Renal transplant [None]
  - Mental status changes [None]

NARRATIVE: CASE EVENT DATE: 2004
